FAERS Safety Report 15027273 (Version 1)
Quarter: 2018Q2

REPORT INFORMATION
  Report Type: Spontaneous
  Country: DE (occurrence: DE)
  Receive Date: 20180619
  Receipt Date: 20180619
  Transmission Date: 20180711
  Serious: Yes (Hospitalization)
  Sender: FDA-Public Use
  Company Number: DE-TEVA-2018-DE-908527

PATIENT
  Age: 77 Year
  Sex: Male

DRUGS (15)
  1. MOLSIDOMIN [Concomitant]
     Active Substance: MOLSIDOMINE
     Dosage: 0-0-1-0
     Route: 065
  2. CALCIUM [Concomitant]
     Active Substance: CALCIUM
     Dosage: NK MG, 1-0-1-0
     Route: 065
  3. ACTRAPID [Concomitant]
     Active Substance: INSULIN HUMAN
     Dosage: NK IE, NACH BZ
     Route: 065
  4. ISMN 40 HEUMANN [Concomitant]
     Dosage: 1-0-0-0
     Route: 065
  5. SPIRIVA [Concomitant]
     Active Substance: TIOTROPIUM BROMIDE MONOHYDRATE
     Dosage: NK MG, 1-0-0-0
     Route: 065
  6. PHOSPHONORM 300MG [Concomitant]
     Dosage: 2-0-2-0
     Route: 065
  7. EISEN II [Concomitant]
     Dosage: NK MG, 1-0-1-0
     Route: 065
  8. EUTHYROX 0,125MG [Concomitant]
     Dosage: 1-0-0-0
     Route: 065
  9. ASS 100 [Concomitant]
     Active Substance: ASPIRIN
     Dosage: 1-0-0-0
     Route: 065
  10. FUROSEMID [Concomitant]
     Active Substance: FUROSEMIDE
     Dosage: 1-1-0-0
     Route: 065
  11. METOPROLOL. [Suspect]
     Active Substance: METOPROLOL
     Dosage: 23 MG, 0.5-0-0-0
     Route: 065
  12. PANTOPRAZOL [Concomitant]
     Active Substance: PANTOPRAZOLE SODIUM
     Dosage: 1-0-0-0
     Route: 065
  13. EFIENT [Concomitant]
     Active Substance: PRASUGREL HYDROCHLORIDE
     Dosage: NK MG, 1-0-0-0
     Route: 065
  14. LEVEMIR [Concomitant]
     Active Substance: INSULIN DETEMIR
     Dosage: 40 IE, 0-0-0-40
     Route: 065
  15. FORADIL [Concomitant]
     Active Substance: FORMOTEROL FUMARATE
     Dosage: NK MG, 1-0-1-0
     Route: 065

REACTIONS (3)
  - Drug dispensing error [Unknown]
  - Peripheral arterial occlusive disease [Unknown]
  - Pain in extremity [Unknown]

NARRATIVE: CASE EVENT DATE: 20170227
